FAERS Safety Report 20628362 (Version 9)
Quarter: 2025Q3

REPORT INFORMATION
  Report Type: Report from Study
  Country: US (occurrence: US)
  Receive Date: 20220323
  Receipt Date: 20250821
  Transmission Date: 20251020
  Serious: Yes (Hospitalization, Other)
  Sender: TAKEDA
  Company Number: US-SHIRE-US202034381

PATIENT
  Age: 73 Year
  Sex: Female

DRUGS (2)
  1. HUMAN IMMUNOGLOBULIN G [Suspect]
     Active Substance: HUMAN IMMUNOGLOBULIN G
     Indication: Immunodeficiency common variable
     Dosage: 35 GRAM, Q4WEEKS
  2. HUMAN IMMUNOGLOBULIN G [Suspect]
     Active Substance: HUMAN IMMUNOGLOBULIN G
     Indication: Primary immunodeficiency syndrome

REACTIONS (17)
  - Nephrolithiasis [Not Recovered/Not Resolved]
  - Gastrointestinal haemorrhage [Unknown]
  - Pneumonia [Unknown]
  - Loss of consciousness [Unknown]
  - Immunoglobulins decreased [Recovered/Resolved]
  - Smear cervix abnormal [Unknown]
  - Bacterial infection [Unknown]
  - Large intestine polyp [Unknown]
  - Poor venous access [Unknown]
  - COVID-19 [Unknown]
  - Oral lichen planus [Unknown]
  - Inappropriate schedule of product administration [Unknown]
  - Sinusitis [Unknown]
  - Anaemia [Unknown]
  - Fatigue [Unknown]
  - Pain in extremity [Unknown]
  - Peripheral coldness [Unknown]

NARRATIVE: CASE EVENT DATE: 20240801
